FAERS Safety Report 4765523-4 (Version None)
Quarter: 2005Q3

REPORT INFORMATION
  Report Type: 
  Country: None (occurrence: None)
  Receive Date: 20050906
  Receipt Date: 20050824
  Transmission Date: 20060218
  Serious: Yes (Hospitalization)
  Sender: FDA-Public Use
  Company Number: 2005045171

PATIENT
  Age: 71 Year
  Sex: Male
  Weight: 83 kg

DRUGS (6)
  1. SOLU-MEDROL [Suspect]
     Indication: NON-HODGKIN'S LYMPHOMA
     Dosage: (, CYCLIC), INTRAVENOUS
     Route: 042
     Dates: start: 20040628
  2. DOXORUBICIN HCL [Suspect]
     Indication: NON-HODGKIN'S LYMPHOMA
     Dosage: (, CYCLIC), INTRAVENOUS
     Route: 042
     Dates: start: 20040628
  3. VINCRISTINE SULFATE [Suspect]
     Indication: NON-HODGKIN'S LYMPHOMA
     Dosage: 2 MG (CYCLIC), INTRAVENOUS
     Route: 042
     Dates: start: 20040628, end: 20040628
  4. METHOTREXATE [Suspect]
     Indication: NON-HODGKIN'S LYMPHOMA
     Dosage: 15 MG (DAILY), INTRATHECAL
     Route: 037
     Dates: start: 20040629
  5. CYCLOPHOSPHAMIDE [Suspect]
     Indication: NON-HODGKIN'S LYMPHOMA
     Dosage: (, CYCLIC), INTRAVENOUS
     Route: 042
     Dates: start: 20040628
  6. MABTHERA (RITUXIMAB) [Suspect]
     Indication: NON-HODGKIN'S LYMPHOMA
     Dosage: 750 MG (DAILY), INTRAVENOUS
     Route: 042
     Dates: start: 20040629

REACTIONS (2)
  - ABDOMINAL PAIN [None]
  - CONSTIPATION [None]
